FAERS Safety Report 19016991 (Version 5)
Quarter: 2024Q3

REPORT INFORMATION
  Report Type: Report from Study
  Country: EG (occurrence: EG)
  Receive Date: 20210316
  Receipt Date: 20240912
  Transmission Date: 20241016
  Serious: No
  Sender: ROCHE
  Company Number: EG-ROCHE-2790389

PATIENT
  Age: 26 Year
  Sex: Female
  Weight: 85.0 kg

DRUGS (36)
  1. OCRELIZUMAB [Suspect]
     Active Substance: OCRELIZUMAB
     Indication: Relapsing-remitting multiple sclerosis
     Dosage: 300 MG/250 ML
     Route: 042
     Dates: start: 20200216, end: 20200216
  2. OCRELIZUMAB [Suspect]
     Active Substance: OCRELIZUMAB
     Dosage: 300 MG/ 260 ML
     Route: 042
     Dates: start: 20200301, end: 20200301
  3. OCRELIZUMAB [Suspect]
     Active Substance: OCRELIZUMAB
     Route: 042
     Dates: start: 20200813, end: 20200813
  4. OCRELIZUMAB [Suspect]
     Active Substance: OCRELIZUMAB
     Route: 042
     Dates: start: 20210308, end: 20210308
  5. OCRELIZUMAB [Suspect]
     Active Substance: OCRELIZUMAB
     Route: 042
     Dates: start: 20221130, end: 20221130
  6. OCRELIZUMAB [Suspect]
     Active Substance: OCRELIZUMAB
     Route: 042
     Dates: start: 20220424, end: 20220424
  7. OCRELIZUMAB [Suspect]
     Active Substance: OCRELIZUMAB
     Route: 042
  8. OCRELIZUMAB [Suspect]
     Active Substance: OCRELIZUMAB
     Route: 042
     Dates: start: 20200216, end: 20200216
  9. OCRELIZUMAB [Suspect]
     Active Substance: OCRELIZUMAB
     Route: 042
     Dates: start: 20200301, end: 20200301
  10. OCRELIZUMAB [Suspect]
     Active Substance: OCRELIZUMAB
     Route: 042
     Dates: start: 20200813, end: 20200813
  11. OCRELIZUMAB [Suspect]
     Active Substance: OCRELIZUMAB
     Route: 042
     Dates: start: 20210925, end: 20210925
  12. OCRELIZUMAB [Suspect]
     Active Substance: OCRELIZUMAB
     Route: 042
  13. OCRELIZUMAB [Suspect]
     Active Substance: OCRELIZUMAB
     Route: 042
     Dates: start: 20210308, end: 20210308
  14. CONTROLOC [Concomitant]
     Active Substance: PANTOPRAZOLE SODIUM
     Indication: Abdominal discomfort
     Route: 048
     Dates: start: 20190514
  15. GAST-REG [Concomitant]
     Indication: Abdominal discomfort
     Route: 048
     Dates: start: 20190514
  16. INFEX (EGYPT) [Concomitant]
     Indication: Symptomatic treatment
     Dosage: 1 TABLET
     Route: 048
  17. NEUROTON [CYANOCOBALAMIN;FOLIC ACID;PYRIDOXINE HYDROCHLORIDE;RIBOFLAVI [Concomitant]
     Indication: Symptomatic treatment
     Dosage: 1 TABLET
     Route: 048
  18. SOLU-MEDROL [Concomitant]
     Active Substance: METHYLPREDNISOLONE SODIUM SUCCINATE
     Indication: Multiple sclerosis relapse
     Route: 042
     Dates: start: 20201103, end: 20201107
  19. SOLU-MEDROL [Concomitant]
     Active Substance: METHYLPREDNISOLONE SODIUM SUCCINATE
     Dosage: FREQUENCY: OTHER
     Route: 042
     Dates: start: 20190514, end: 20200121
  20. PREDNISOLONE [Concomitant]
     Active Substance: PREDNISOLONE
     Indication: Multiple sclerosis relapse
     Route: 048
     Dates: start: 20201108, end: 20201214
  21. METHYLPREDNISOLONE [Concomitant]
     Active Substance: METHYLPREDNISOLONE
     Indication: Premedication
     Dosage: ONCE BEFORE INFUSION
     Route: 042
     Dates: start: 20200216, end: 20200216
  22. METHYLPREDNISOLONE [Concomitant]
     Active Substance: METHYLPREDNISOLONE
     Dosage: ONCE BEFORE INFUSION
     Route: 042
     Dates: start: 20200301, end: 20200301
  23. METHYLPREDNISOLONE [Concomitant]
     Active Substance: METHYLPREDNISOLONE
     Dosage: ONCE BEFORE INFUSION
     Route: 042
     Dates: start: 20200813, end: 20200813
  24. METHYLPREDNISOLONE [Concomitant]
     Active Substance: METHYLPREDNISOLONE
     Dosage: ONCE BEFORE INFUSION
     Route: 042
     Dates: start: 20210308, end: 20210308
  25. PHENIRAMINE [Concomitant]
     Active Substance: PHENIRAMINE
     Indication: Premedication
     Dosage: ONCE BEFORE INFUSION
     Route: 042
     Dates: start: 20200216, end: 20200216
  26. PHENIRAMINE [Concomitant]
     Active Substance: PHENIRAMINE
     Dosage: ONCE BEFORE INFUSION
     Route: 042
     Dates: start: 20200301, end: 20200301
  27. PHENIRAMINE [Concomitant]
     Active Substance: PHENIRAMINE
     Dosage: ONCE BEFORE INFUSION
     Route: 042
     Dates: start: 20200813, end: 20200813
  28. PHENIRAMINE [Concomitant]
     Active Substance: PHENIRAMINE
     Dosage: ONCE BEFORE INFUSION
     Route: 042
     Dates: start: 20210308, end: 20210308
  29. PANADOL [Concomitant]
     Active Substance: ACETAMINOPHEN
     Dosage: 1 TABLET
     Route: 048
     Dates: start: 20201113, end: 20201226
  30. ZINC [Concomitant]
     Active Substance: ZINC
     Route: 048
     Dates: start: 20201113, end: 20201226
  31. VITACID C [Concomitant]
     Route: 048
     Dates: start: 20201113, end: 20201226
  32. ACETYLCYSTEINE [Concomitant]
     Active Substance: ACETYLCYSTEINE
     Route: 048
     Dates: start: 20201113, end: 20201226
  33. DROPIFLOX [Concomitant]
     Indication: Otitis media
     Dates: start: 20200613, end: 20200619
  34. ALFACALCIDOL [Concomitant]
     Active Substance: ALFACALCIDOL
     Route: 048
  35. BENFOTIAMINE\CYANOCOBALAMIN\PYRIDOXINE HYDROCHLORIDE [Concomitant]
     Active Substance: BENFOTIAMINE\CYANOCOBALAMIN\PYRIDOXINE HYDROCHLORIDE
     Dosage: 1 TABLET
     Route: 048
  36. BONE CARE [ALFACALCIDOL] [Concomitant]
     Route: 048
     Dates: start: 20180215, end: 20220207

REACTIONS (1)
  - Suspected COVID-19 [Recovered/Resolved]

NARRATIVE: CASE EVENT DATE: 20201110
